FAERS Safety Report 8249632 (Version 5)
Quarter: 2013Q1

REPORT INFORMATION
  Report Type: Spontaneous
  Country: US (occurrence: US)
  Receive Date: 20111117
  Receipt Date: 20130211
  Transmission Date: 20140127
  Serious: Yes (Hospitalization, Congenital Anomaly)
  Sender: FDA-Public Use
  Company Number: US-GLAXOSMITHKLINE-A0953432A

PATIENT
  Age: 0 Year
  Sex: Male

DRUGS (6)
  1. PAXIL [Suspect]
     Indication: DEPRESSION
     Dosage: 30MG PER DAY
     Route: 064
  2. PAXIL CR [Suspect]
     Indication: ANXIETY
     Route: 064
  3. INSULIN [Concomitant]
     Route: 064
  4. NORVASC [Concomitant]
     Route: 064
  5. LOTREL [Concomitant]
  6. VITAMINS [Concomitant]
     Route: 064

REACTIONS (5)
  - Ventricular septal defect [Unknown]
  - Mitral valve incompetence [Unknown]
  - Tricuspid valve incompetence [Unknown]
  - Aortic valve prolapse [Unknown]
  - Foetal exposure during pregnancy [Unknown]
